FAERS Safety Report 6211889-8 (Version None)
Quarter: 2009Q2

REPORT INFORMATION
  Report Type: 
  Country: None (occurrence: None)
  Receive Date: 20090529
  Receipt Date: 20090518
  Transmission Date: 20091009
  Serious: Yes (Other)
  Sender: FDA-Public Use
  Company Number: 2009AP002049

PATIENT
  Age: 59 Year
  Sex: Female

DRUGS (3)
  1. PRAVASTATIN SODIUM [Suspect]
     Indication: HYPERLIPIDAEMIA
     Dosage: 40 MG, QD, PO
     Route: 048
     Dates: start: 20090101
  2. ANTIHYPERTENSIVES [Concomitant]
  3. DIURECTICS [Concomitant]

REACTIONS (3)
  - CHILLS [None]
  - FEELING HOT [None]
  - LOSS OF CONSCIOUSNESS [None]
